FAERS Safety Report 25674740 (Version 3)
Quarter: 2025Q4

REPORT INFORMATION
  Report Type: Spontaneous
  Country: JP (occurrence: JP)
  Receive Date: 20250813
  Receipt Date: 20251216
  Transmission Date: 20260118
  Serious: Yes (Hospitalization, Other)
  Sender: Vantive US Healthcare
  Company Number: JP-VANTIVE-2025VAN003365

PATIENT
  Sex: Male

DRUGS (2)
  1. EXTRANEAL [Suspect]
     Active Substance: CALCIUM CHLORIDE\ICODEXTRIN\MAGNESIUM CHLORIDE\SODIUM CHLORIDE\SODIUM LACTATE
     Dosage: UNK
     Route: 033
  2. CALCIUM CHLORIDE\DEXTROSE\MAGNESIUM CHLORIDE\SODIUM CHLORIDE\SODIUM LA [Concomitant]
     Active Substance: CALCIUM CHLORIDE\DEXTROSE\MAGNESIUM CHLORIDE\SODIUM CHLORIDE\SODIUM LACTATE
     Route: 065

REACTIONS (6)
  - Decreased appetite [Recovered/Resolved]
  - Ileus [Unknown]
  - Decreased appetite [Recovered/Resolved]
  - Feeding disorder [Recovered/Resolved]
  - Malaise [Unknown]
  - Weight decreased [Unknown]
